FAERS Safety Report 6709907-3 (Version None)
Quarter: 2010Q2

REPORT INFORMATION
  Report Type: 
  Country: None (occurrence: None)
  Receive Date: 20100504
  Receipt Date: 20100429
  Transmission Date: 20101027
  Serious: Yes (Other)
  Sender: FDA-Public Use
  Company Number: JP-ROXANE LABORATORIES, INC.-2010-RO-00479RO

PATIENT
  Age: 58 Year
  Sex: Female
  Weight: 50 kg

DRUGS (6)
  1. FLUCONAZOLE [Suspect]
     Indication: ANTIFUNGAL PROPHYLAXIS
     Dosage: 200 MG
     Route: 048
  2. PROGRAF [Suspect]
     Indication: PROPHYLAXIS AGAINST GRAFT VERSUS HOST DISEASE
     Dosage: 6 MG
     Route: 048
  3. PROGRAF [Suspect]
     Dosage: 2 MG
     Route: 048
  4. AMIKACIN [Suspect]
     Indication: ANTIBIOTIC PROPHYLAXIS
  5. ACYCLOVIR [Suspect]
     Indication: ANTIVIRAL PROPHYLAXIS
  6. SIMVASTATIN [Suspect]
     Dosage: 5 MG

REACTIONS (6)
  - BLOOD CREATININE INCREASED [None]
  - BLOOD UREA INCREASED [None]
  - DRUG LEVEL INCREASED [None]
  - IMMUNOSUPPRESSANT DRUG LEVEL INCREASED [None]
  - PYREXIA [None]
  - RENAL IMPAIRMENT [None]
